FAERS Safety Report 21674433 (Version 1)
Quarter: 2022Q4

REPORT INFORMATION
  Report Type: Spontaneous
  Country: US (occurrence: None)
  Receive Date: 20221201
  Receipt Date: 20221201
  Transmission Date: 20230113
  Serious: Yes (Disabling, Other)
  Sender: FDA-Public Use
  Company Number: None

PATIENT
  Age: 36 Year
  Sex: Female
  Weight: 90 kg

DRUGS (18)
  1. NEULASTA [Suspect]
     Active Substance: PEGFILGRASTIM
     Indication: Chemotherapy
     Dosage: OTHER FREQUENCY : 1X PER CYCLE;?
     Route: 058
     Dates: start: 20150415, end: 20150801
  2. NEULASTA [Suspect]
     Active Substance: PEGFILGRASTIM
     Indication: Immune system disorder
  3. GABAPENTIN [Concomitant]
     Active Substance: GABAPENTIN
  4. SAVELLA [Concomitant]
     Active Substance: MILNACIPRAN HYDROCHLORIDE
  5. AMILORIDE [Concomitant]
     Active Substance: AMILORIDE
  6. INDAPAMIDE [Concomitant]
     Active Substance: INDAPAMIDE
  7. Atorvastaion [Concomitant]
  8. VITAMIN D [Concomitant]
     Active Substance: VITAMIN D NOS
  9. RECLAST [Concomitant]
     Active Substance: ZOLEDRONIC ACID
  10. IMITREX [Concomitant]
     Active Substance: SUMATRIPTAN SUCCINATE
  11. IBUPROFEN [Concomitant]
     Active Substance: IBUPROFEN
  12. ACETAMINOPHEN [Concomitant]
     Active Substance: ACETAMINOPHEN
  13. HERBALS\MITRAGYNINE [Concomitant]
     Active Substance: HERBALS\MITRAGYNINE
  14. EXCEDRIN [Concomitant]
     Active Substance: ACETAMINOPHEN\ASPIRIN\CAFFEINE
  15. FISH OIL [Concomitant]
     Active Substance: FISH OIL
  16. VITAMIN B COMPLEX [Concomitant]
     Active Substance: CYANOCOBALAMIN\DEXPANTHENOL\NIACINAMIDE\PYRIDOXINE HYDROCHLORIDE\RIBOFLAVIN 5^-PHOSPHATE SODIUM\THIA
  17. MAGNESIUM [Concomitant]
     Active Substance: MAGNESIUM
  18. ZINC [Concomitant]
     Active Substance: ZINC

REACTIONS (3)
  - Bone pain [None]
  - Thrombocytopenia [None]
  - Parathyroid tumour [None]

NARRATIVE: CASE EVENT DATE: 20150415
